FAERS Safety Report 10677189 (Version 1)
Quarter: 2014Q4

REPORT INFORMATION
  Report Type: Spontaneous
  Country: DE (occurrence: DE)
  Receive Date: 20141226
  Receipt Date: 20141226
  Transmission Date: 20150529
  Serious: Yes (Other)
  Sender: FDA-Public Use
  Company Number: PHHY2014DE168695

PATIENT
  Age: 48 Year

DRUGS (1)
  1. ZOLEDRONATE [Suspect]
     Active Substance: ZOLEDRONIC ACID
     Indication: OSTEOPOROSIS
     Dosage: 4 MG/4 WEEKS
     Route: 042

REACTIONS (2)
  - Osteonecrosis of jaw [Unknown]
  - Acute phase reaction [Unknown]
